FAERS Safety Report 9277116 (Version 1)
Quarter: 2013Q2

REPORT INFORMATION
  Report Type: Report from Study
  Country: BR (occurrence: BR)
  Receive Date: 20130507
  Receipt Date: 20130507
  Transmission Date: 20140414
  Serious: Yes (Hospitalization)
  Sender: FDA-Public Use
  Company Number: BR-ROCHE-1221668

PATIENT
  Sex: Male
  Weight: 60 kg

DRUGS (3)
  1. MABTHERA [Suspect]
     Indication: RHEUMATOID ARTHRITIS
     Route: 065
     Dates: start: 20130418
  2. METHOTREXATE [Concomitant]
  3. ENDOFOLIN [Concomitant]

REACTIONS (2)
  - Sinusitis [Unknown]
  - Nasal septum deviation [Recovering/Resolving]
